FAERS Safety Report 4882382-X (Version None)
Quarter: 2005Q4

REPORT INFORMATION
  Report Type: 
  Country: None (occurrence: None)
  Receive Date: 20051201
  Receipt Date: 20050725
  Transmission Date: 20060501
  Serious: No
  Sender: FDA-Public Use
  Company Number: 2005PV000612

PATIENT
  Age: 62 Year
  Sex: Female
  Weight: 84.369 kg

DRUGS (9)
  1. BYETTA [Suspect]
     Indication: DIABETES MELLITUS NON-INSULIN-DEPENDENT
     Dosage: 5 MCG;BID;SC
     Route: 058
     Dates: start: 20050711
  2. GLUCOVANCE [Concomitant]
  3. DIOVAN [Concomitant]
  4. FOLTEX [Concomitant]
  5. TRICOR [Concomitant]
  6. EFFEOXR-XR [Concomitant]
  7. ASA/CALCIUM [Concomitant]
  8. NOVOLOG [Concomitant]
  9. AVANDIA [Concomitant]

REACTIONS (1)
  - BLOOD GLUCOSE INCREASED [None]
